FAERS Safety Report 4556996-0 (Version None)
Quarter: 2005Q1

REPORT INFORMATION
  Report Type: 
  Country: None (occurrence: None)
  Receive Date: 20050118
  Receipt Date: 20050104
  Transmission Date: 20050727
  Serious: Yes (Hospitalization)
  Sender: FDA-Public Use
  Company Number: 2005-0007893

PATIENT
  Sex: Male
  Weight: 79 kg

DRUGS (6)
  1. VIREAD [Suspect]
     Indication: HIV INFECTION
     Dosage: 300 MG, 1 IN 1 D, ORAL
     Route: 048
     Dates: start: 20040914, end: 20041018
  2. TELZIR (FOSAMPRENAVIR) [Suspect]
     Indication: HIV INFECTION
     Dosage: 2 IN 1 D, ORAL
     Route: 048
     Dates: start: 20040914, end: 20041018
  3. NORVIR [Concomitant]
  4. EPIVIR [Concomitant]
  5. BACTRIM [Concomitant]
  6. GLYBURIDE [Concomitant]

REACTIONS (2)
  - BLOOD AMYLASE INCREASED [None]
  - LIPASE INCREASED [None]
